FAERS Safety Report 12634804 (Version 1)
Quarter: 2016Q3

REPORT INFORMATION
  Report Type: Spontaneous
  Country: US (occurrence: US)
  Receive Date: 20160808
  Receipt Date: 20160808
  Transmission Date: 20161109
  Serious: No
  Sender: FDA-Public Use
  Company Number: US-XTTRIUM LABORATORIES, INC-1056045

PATIENT
  Age: 78 Year
  Sex: Female

DRUGS (1)
  1. CHLORHEXIDINE GLUCONATE. [Suspect]
     Active Substance: CHLORHEXIDINE GLUCONATE
     Route: 002

REACTIONS (3)
  - Dysgeusia [Recovered/Resolved]
  - Administration site rash [Recovered/Resolved]
  - Administration site dryness [Recovered/Resolved]
